FAERS Safety Report 17375400 (Version 1)
Quarter: 2020Q1

REPORT INFORMATION
  Report Type: Report from Study
  Country: US (occurrence: US)
  Receive Date: 20200205
  Receipt Date: 20200205
  Transmission Date: 20200409
  Serious: Yes (Other)
  Sender: FDA-Public Use
  Company Number: US-SA-2016SA134131

PATIENT
  Age: 50 Year
  Sex: Female

DRUGS (1)
  1. ALEMTUZUMAB [Suspect]
     Active Substance: ALEMTUZUMAB
     Indication: MULTIPLE SCLEROSIS
     Dosage: 12 MG,QD
     Route: 041
     Dates: start: 20160606, end: 20160610

REACTIONS (10)
  - Mass [Not Recovered/Not Resolved]
  - Muscle spasticity [Unknown]
  - Sensation of foreign body [Not Recovered/Not Resolved]
  - Vitamin D decreased [Unknown]
  - Memory impairment [Not Recovered/Not Resolved]
  - Tinnitus [Unknown]
  - Pharyngeal disorder [Not Recovered/Not Resolved]
  - Hypertonic bladder [Not Recovered/Not Resolved]
  - Hypoaesthesia [Unknown]
  - Oral candidiasis [Not Recovered/Not Resolved]

NARRATIVE: CASE EVENT DATE: 2016
